FAERS Safety Report 24394440 (Version 3)
Quarter: 2024Q4

REPORT INFORMATION
  Report Type: Report from Study
  Country: US (occurrence: US)
  Receive Date: 20241004
  Receipt Date: 20241210
  Transmission Date: 20250115
  Serious: No
  Sender: ACADIA PHARMACEUTICALS
  Company Number: US-ACADIA PHARMACEUTICALS INC.-ACA-2024-PIM-005955

PATIENT
  Age: 69 Year
  Sex: Male
  Weight: 65 kg

DRUGS (24)
  1. NUPLAZID [Suspect]
     Active Substance: PIMAVANSERIN TARTRATE
     Indication: Parkinson^s disease psychosis
     Dosage: 34 MILLIGRAM, QD
     Route: 048
     Dates: start: 202307, end: 20240822
  2. NUPLAZID [Suspect]
     Active Substance: PIMAVANSERIN TARTRATE
     Dosage: 34 MILLIGRAM, QD
     Route: 048
     Dates: start: 20240917
  3. CALCIUM ASCORBATE [Concomitant]
     Active Substance: CALCIUM ASCORBATE
     Route: 048
  4. ATORVASTATIN [Concomitant]
     Active Substance: ATORVASTATIN
     Dosage: 10 MILLIGRAM
     Route: 048
  5. CARBIDOPA LEVODOPA [Concomitant]
     Active Substance: CARBIDOPA\LEVODOPA
     Dosage: 25-100 MG 1TAB PO TID
     Route: 048
  6. CARBIDOPA LEVODOPA [Concomitant]
     Active Substance: CARBIDOPA\LEVODOPA
     Dosage: 25-100 MG 1.5-2 TABLETS ORALLY THREE TIMES A DAY
  7. DESMOPRESSIN [Concomitant]
     Active Substance: DESMOPRESSIN
     Dosage: 0.1 MG PO DAILY
     Route: 048
  8. DIVALPROEX SODIUM [Concomitant]
     Active Substance: DIVALPROEX SODIUM
     Indication: Focal dyscognitive seizures
     Dosage: 1,000 MG (2X500 MG) PO BID
  9. DIVALPROEX SODIUM [Concomitant]
     Active Substance: DIVALPROEX SODIUM
     Indication: Epilepsy
  10. DIVALPROEX SODIUM [Concomitant]
     Active Substance: DIVALPROEX SODIUM
     Indication: Parkinson^s disease
  11. FAMOTIDINE [Concomitant]
     Active Substance: FAMOTIDINE
     Dosage: 40 MILLIGRAM PO DAILY
     Route: 048
  12. LACOSAMIDE [Concomitant]
     Active Substance: LACOSAMIDE
     Indication: Psychotic disorder
     Dosage: 200 MILLIGRAM, BID
     Route: 048
  13. LACOSAMIDE [Concomitant]
     Active Substance: LACOSAMIDE
     Indication: Delusion
  14. LACOSAMIDE [Concomitant]
     Active Substance: LACOSAMIDE
     Indication: Parkinson^s disease
  15. LACOSAMIDE [Concomitant]
     Active Substance: LACOSAMIDE
     Indication: Epilepsy
  16. LACOSAMIDE [Concomitant]
     Active Substance: LACOSAMIDE
     Indication: Focal dyscognitive seizures
  17. LEVETIRACETAM [Concomitant]
     Active Substance: LEVETIRACETAM
     Indication: Focal dyscognitive seizures
     Dosage: 1000 MILLIGRAM, BID
  18. LEVETIRACETAM [Concomitant]
     Active Substance: LEVETIRACETAM
     Indication: Epilepsy
     Dosage: 1,000 MG (2X500 MG) PO BID
  19. LEVETIRACETAM [Concomitant]
     Active Substance: LEVETIRACETAM
     Dosage: 5 MILLIGRAM, BID
  20. LEVOTHYROXINE [Concomitant]
     Active Substance: LEVOTHYROXINE
     Dosage: 88 MICROGRAM PO DAILY
     Route: 048
  21. CENTRUM ADULTS [Concomitant]
     Route: 048
  22. OXYBUTYNIN CHLORIDE [Concomitant]
     Active Substance: OXYBUTYNIN CHLORIDE
     Dosage: 5 MILLIGRAM PO DAILY
     Route: 048
  23. QUETIAPINE [Concomitant]
     Active Substance: QUETIAPINE
     Indication: Psychotic disorder
     Dosage: 50-100 MG (1-2X50 MG) PO Q DAY PRN
  24. QUETIAPINE [Concomitant]
     Active Substance: QUETIAPINE
     Indication: Delusion
     Dosage: 50 MG PO QPM
     Route: 048

REACTIONS (2)
  - Product use issue [Recovered/Resolved]
  - Tremor [Recovering/Resolving]

NARRATIVE: CASE EVENT DATE: 20240822
